FAERS Safety Report 20029218 (Version 2)
Quarter: 2021Q4

REPORT INFORMATION
  Report Type: Spontaneous
  Country: JP (occurrence: JP)
  Receive Date: 20211103
  Receipt Date: 20211109
  Transmission Date: 20220303
  Serious: Yes (Other)
  Sender: FDA-Public Use
  Company Number: JP-SCALL-2021-JP-000520

PATIENT
  Age: 81 Year
  Sex: Male

DRUGS (4)
  1. DUTASTERIDE [Suspect]
     Active Substance: DUTASTERIDE
     Indication: Product used for unknown indication
     Dosage: 0.5 MG, QD
     Route: 065
  2. IMIDAPRIL HYDROCHLORIDE [Concomitant]
     Active Substance: IMIDAPRIL HYDROCHLORIDE
     Route: 065
  3. SILODOSIN [Concomitant]
     Active Substance: SILODOSIN
     Route: 065
  4. Unspecified cardiovascular and respiratory medications [Concomitant]

REACTIONS (3)
  - Urinary retention [Unknown]
  - Dysuria [Unknown]
  - Pollakiuria [Unknown]
